FAERS Safety Report 8889430 (Version 1)
Quarter: 2012Q4

REPORT INFORMATION
  Report Type: Spontaneous
  Country: US (occurrence: None)
  Receive Date: 20121102
  Receipt Date: 20121102
  Transmission Date: 20130627
  Serious: Yes (Life-Threatening)
  Sender: FDA-Public Use
  Company Number: None

PATIENT
  Age: 54 Year
  Sex: Female
  Weight: 72.58 kg

DRUGS (1)
  1. SAPHRIS [Suspect]
     Route: 060
     Dates: start: 20120905, end: 20121016

REACTIONS (3)
  - Dizziness postural [None]
  - Loss of consciousness [None]
  - Swelling [None]
